FAERS Safety Report 19021135 (Version 1)
Quarter: 2021Q1

REPORT INFORMATION
  Report Type: Spontaneous
  Country: US (occurrence: US)
  Receive Date: 20210317
  Receipt Date: 20210317
  Transmission Date: 20210420
  Serious: No
  Sender: FDA-Public Use
  Company Number: US-BAUSCH-BL-2021-008203

PATIENT
  Age: 85 Year
  Sex: Female
  Weight: 61.29 kg

DRUGS (2)
  1. LATANOPROST OPHTHALMIC SOLUTION 0.005% [Suspect]
     Active Substance: LATANOPROST
     Indication: GLAUCOMA
     Route: 047
  2. DORZOLAMIDE HYDROCHLORIDE OPHTHALMIC SOLUTION 2% [Suspect]
     Active Substance: DORZOLAMIDE HYDROCHLORIDE
     Indication: GLAUCOMA
     Dosage: AT LEAST 9 MONTHS AGO
     Route: 047
     Dates: start: 2020

REACTIONS (7)
  - Eye irritation [Recovered/Resolved]
  - Eye pain [Recovering/Resolving]
  - Dry eye [Recovered/Resolved]
  - Foreign body sensation in eyes [Recovering/Resolving]
  - Ocular discomfort [Recovered/Resolved]
  - Liquid product physical issue [Unknown]
  - Product deposit [Unknown]

NARRATIVE: CASE EVENT DATE: 202101
